FAERS Safety Report 16750186 (Version 6)
Quarter: 2020Q2

REPORT INFORMATION
  Report Type: Report from Study
  Country: None (occurrence: US)
  Receive Date: 20190828
  Receipt Date: 20200506
  Transmission Date: 20200713
  Serious: Yes (Other)
  Sender: FDA-Public Use
  Company Number: US-ABBVIE-19K-163-2899958-00

PATIENT
  Age: 60 Year
  Sex: Female
  Weight: 49.94 kg

DRUGS (9)
  1. AMBIEN [Concomitant]
     Active Substance: ZOLPIDEM TARTRATE
     Indication: SLEEP DISORDER
  2. BENADRYL [Concomitant]
     Active Substance: DIPHENHYDRAMINE HYDROCHLORIDE
     Indication: PRODUCT USED FOR UNKNOWN INDICATION
  3. VENCLEXTA [Suspect]
     Active Substance: VENETOCLAX
     Indication: CHRONIC LYMPHOCYTIC LEUKAEMIA
     Dosage: NIGHTLY
     Route: 048
     Dates: start: 20161209
  4. OBINUTUZUMAB. [Concomitant]
     Active Substance: OBINUTUZUMAB
     Indication: PRODUCT USED FOR UNKNOWN INDICATION
     Route: 065
  5. REMERON [Concomitant]
     Active Substance: MIRTAZAPINE
     Indication: DEPRESSION
  6. LEVAQUIN [Concomitant]
     Active Substance: LEVOFLOXACIN
     Indication: PROPHYLAXIS
  7. LEVOTHYROXINE. [Concomitant]
     Active Substance: LEVOTHYROXINE
     Indication: PRODUCT USED FOR UNKNOWN INDICATION
  8. NORCO [Concomitant]
     Active Substance: ACETAMINOPHEN\HYDROCODONE BITARTRATE
     Indication: PRODUCT USED FOR UNKNOWN INDICATION
     Dosage: 1 PILL
  9. GAZYVA [Concomitant]
     Active Substance: OBINUTUZUMAB
     Indication: CHRONIC LYMPHOCYTIC LEUKAEMIA

REACTIONS (53)
  - Weight decreased [Not Recovered/Not Resolved]
  - Ear congestion [Recovering/Resolving]
  - Swelling [Not Recovered/Not Resolved]
  - Neoplasm malignant [Unknown]
  - Mucosal disorder [Unknown]
  - Fatigue [Recovering/Resolving]
  - Panic attack [Unknown]
  - Nasopharyngitis [Not Recovered/Not Resolved]
  - White blood cell count decreased [Unknown]
  - Respiratory tract infection viral [Recovered/Resolved]
  - Ear swelling [Unknown]
  - Food aversion [Recovered/Resolved]
  - Eructation [Recovered/Resolved]
  - Tonsillar hypertrophy [Recovering/Resolving]
  - Dizziness [Recovering/Resolving]
  - Nervous system disorder [Not Recovered/Not Resolved]
  - Migraine [Unknown]
  - Nausea [Recovered/Resolved]
  - Inflammation [Unknown]
  - Rash [Unknown]
  - Fatigue [Recovered/Resolved]
  - Dysarthria [Recovered/Resolved]
  - Deafness neurosensory [Recovering/Resolving]
  - Anxiety [Not Recovered/Not Resolved]
  - Dyspnoea [Recovered/Resolved]
  - Insomnia [Unknown]
  - Blister [Unknown]
  - Post-traumatic stress disorder [Unknown]
  - Swelling [Unknown]
  - Throat irritation [Recovered/Resolved]
  - Haemoglobin decreased [Recovering/Resolving]
  - Lymphocyte percentage decreased [Recovering/Resolving]
  - Dyspnoea [Unknown]
  - Deafness [Not Recovered/Not Resolved]
  - Back pain [Recovered/Resolved]
  - Stress [Recovering/Resolving]
  - Neutrophil count decreased [Recovering/Resolving]
  - Platelet count decreased [Recovering/Resolving]
  - Fatigue [Recovered/Resolved]
  - Ear discomfort [Not Recovered/Not Resolved]
  - Inner ear disorder [Unknown]
  - Bronchitis viral [Unknown]
  - Discharge [Recovering/Resolving]
  - Toothache [Not Recovered/Not Resolved]
  - Influenza [Unknown]
  - Nausea [Not Recovered/Not Resolved]
  - Malaise [Unknown]
  - Dizziness [Recovered/Resolved]
  - Mental disorder [Recovering/Resolving]
  - Impaired work ability [Unknown]
  - Head discomfort [Unknown]
  - Fatigue [Unknown]
  - Tooth disorder [Unknown]

NARRATIVE: CASE EVENT DATE: 2017
